FAERS Safety Report 5940557-2 (Version None)
Quarter: 2008Q4

REPORT INFORMATION
  Report Type: 
  Country: None (occurrence: None)
  Receive Date: 20081104
  Receipt Date: 20081029
  Transmission Date: 20090506
  Serious: Yes (Other)
  Sender: FDA-Public Use
  Company Number: JP-ASTRAZENECA-2008AP08461

PATIENT
  Age: 70 Year
  Sex: Male
  Weight: 55 kg

DRUGS (8)
  1. DIPRIVAN [Suspect]
     Indication: INDUCTION OF ANAESTHESIA
     Dosage: DOSE UNKNOWN
     Route: 042
  2. CILOSTAZOL [Concomitant]
     Dosage: NUMBER OF SEPARATE DOSES UNKNOWN
     Route: 048
  3. NICORANDIL [Concomitant]
     Dosage: NUMBER OF SEPARATE DOSES UNKNOWN
     Route: 048
  4. AMLODIPINE BESYLATE [Concomitant]
     Indication: HYPERTENSION
     Dosage: NUMBER OF SEPARATE DOSES UNKNOWN
     Route: 048
  5. FENTANYL [Concomitant]
     Indication: INDUCTION OF ANAESTHESIA
     Dosage: DOSE UNKNOWN
     Route: 042
  6. VECURONIUM BROMIDE [Concomitant]
     Indication: INDUCTION OF ANAESTHESIA
     Dosage: DOSE UNKNOWN
     Route: 042
  7. SEVOFLURANE [Concomitant]
     Indication: MAINTENANCE OF ANAESTHESIA
     Dosage: DOSE UNKNOWN
     Route: 055
  8. OXYGEN [Concomitant]
     Indication: MAINTENANCE OF ANAESTHESIA
     Dosage: DOSE UNKNOWN
     Route: 055

REACTIONS (2)
  - CARDIAC FAILURE CONGESTIVE [None]
  - PULMONARY OEDEMA [None]
